FAERS Safety Report 18123635 (Version 1)
Quarter: 2020Q3

REPORT INFORMATION
  Report Type: Spontaneous
  Country: US (occurrence: US)
  Receive Date: 20200807
  Receipt Date: 20200807
  Transmission Date: 20201103
  Serious: No
  Sender: FDA-Public Use
  Company Number: US-AEGERION PHARMACEUTICAL, INC-AEGR004717

PATIENT
  Sex: Female
  Weight: 67.12 kg

DRUGS (2)
  1. BACTERIOSTATIC WATER [Concomitant]
     Active Substance: WATER
     Indication: PRODUCT USED FOR UNKNOWN INDICATION
  2. MYALEPT [Suspect]
     Active Substance: METRELEPTIN
     Indication: LIPODYSTROPHY ACQUIRED
     Dosage: 5 MG, QD
     Route: 058

REACTIONS (4)
  - Injection site discolouration [Unknown]
  - Pain in extremity [Unknown]
  - Blood glucose decreased [Unknown]
  - Injection site mass [Unknown]
